FAERS Safety Report 7910768-5 (Version None)
Quarter: 2011Q4

REPORT INFORMATION
  Report Type: 
  Country: None (occurrence: None)
  Receive Date: 20111112
  Receipt Date: 20111102
  Transmission Date: 20120403
  Serious: Yes (Hospitalization, Other)
  Sender: FDA-Public Use
  Company Number: US-ASTRAZENECA-2011SE66483

PATIENT
  Age: 62 Year
  Sex: Female

DRUGS (2)
  1. ZOMETA [Concomitant]
  2. ARIMIDEX [Suspect]
     Route: 048
     Dates: start: 20090101, end: 20110901

REACTIONS (5)
  - METASTASES TO PELVIS [None]
  - METASTASES TO CHEST WALL [None]
  - METASTASES TO SPINE [None]
  - CARDIAC DISORDER [None]
  - METASTASES TO BONE [None]
